FAERS Safety Report 23136911 (Version 2)
Quarter: 2023Q4

REPORT INFORMATION
  Report Type: Other
  Country: CA (occurrence: None)
  Receive Date: 20231102
  Receipt Date: 20231110
  Transmission Date: 20240110
  Serious: Yes (Other)
  Sender: FDA-Public Use
  Company Number: CA-ROCHE-3373141

PATIENT
  Sex: Female

DRUGS (6)
  1. OCREVUS [Suspect]
     Active Substance: OCRELIZUMAB
     Indication: Relapsing-remitting multiple sclerosis
     Dosage: 300 MG AT DAY 0 AND 14, THEN 600 MG EVERY 6 MONTHS
     Route: 042
     Dates: start: 20211216
  2. NITROFURANTOIN [Concomitant]
     Active Substance: NITROFURANTOIN
  3. IBUPROFEN [Concomitant]
     Active Substance: IBUPROFEN
  4. TYSABRI [Concomitant]
     Active Substance: NATALIZUMAB
  5. ZOLPIDEM [Concomitant]
     Active Substance: ZOLPIDEM TARTRATE
     Dosage: ONCE IN A WHILE
  6. BOTOX [Concomitant]
     Active Substance: ONABOTULINUMTOXINA
     Dosage: BEEN ON FOR OVER A YEAR

REACTIONS (3)
  - Bladder disorder [Unknown]
  - Multiple sclerosis [Unknown]
  - COVID-19 [Unknown]
